FAERS Safety Report 4614254-X (Version None)
Quarter: 2005Q1

REPORT INFORMATION
  Report Type: 
  Country: None (occurrence: None)
  Receive Date: 20050321
  Receipt Date: 20031003
  Transmission Date: 20050727
  Serious: Yes (Hospitalization)
  Sender: FDA-Public Use
  Company Number: JP-ABBOTT-03P-087-0236236-00

PATIENT
  Sex: Male

DRUGS (20)
  1. KALETRA [Suspect]
     Indication: HIV INFECTION
     Route: 048
     Dates: start: 20020805, end: 20030728
  2. KALETRA [Suspect]
     Route: 048
     Dates: start: 20030827
  3. CLARITH [Suspect]
     Indication: MYCOBACTERIUM AVIUM COMPLEX INFECTION
     Route: 048
     Dates: start: 20020723, end: 20020725
  4. CLARITH [Suspect]
     Route: 048
     Dates: start: 20021010, end: 20030728
  5. LAMIVUDINE [Suspect]
     Indication: HIV INFECTION
     Route: 048
     Dates: start: 20020805, end: 20030702
  6. LAMIVUDINE [Suspect]
     Route: 048
     Dates: start: 20030714, end: 20030728
  7. STAVUDINE [Suspect]
     Indication: HIV INFECTION
     Route: 048
     Dates: start: 20020805, end: 20030702
  8. LAMIVUDINE AND ZIDOVUDINE [Suspect]
     Indication: HIV INFECTION
     Route: 048
     Dates: start: 20030703, end: 20030713
  9. LAMIVUDINE AND ZIDOVUDINE [Suspect]
     Route: 048
     Dates: start: 20030827
  10. ABACAVIR [Suspect]
     Indication: HIV INFECTION
     Route: 048
     Dates: start: 20030714, end: 20030728
  11. AZITHROMYCIN [Concomitant]
     Indication: MYCOBACTERIUM AVIUM COMPLEX INFECTION
     Dates: start: 20020726, end: 20020822
  12. AZITHROMYCIN [Concomitant]
     Dates: start: 20020827, end: 20021009
  13. ETHAMBUTOL HCL [Concomitant]
     Indication: MYCOBACTERIUM AVIUM COMPLEX INFECTION
     Route: 048
     Dates: start: 20020723, end: 20020822
  14. ETHAMBUTOL HCL [Concomitant]
     Route: 048
     Dates: start: 20020827
  15. SPARFLOXACIN [Concomitant]
     Indication: MYCOBACTERIUM AVIUM COMPLEX INFECTION
     Route: 048
     Dates: start: 20020827
  16. HYDROCORTISONE [Concomitant]
     Indication: ADRENAL INSUFFICIENCY
     Dates: start: 20020801, end: 20020819
  17. HYDROCORTISONE [Concomitant]
     Dates: start: 20020820, end: 20020912
  18. PREDNISOLONE [Concomitant]
     Indication: ADRENAL INSUFFICIENCY
     Dosage: 15-30 MG
     Dates: start: 20020913
  19. GANCICLOVIR [Concomitant]
     Indication: CYTOMEGALOVIRUS CHORIORETINITIS
     Route: 042
     Dates: start: 20020715, end: 20020902
  20. GANCICLOVIR [Concomitant]
     Route: 042
     Dates: start: 20020903, end: 20020908

REACTIONS (14)
  - ALANINE AMINOTRANSFERASE INCREASED [None]
  - ASPARTATE AMINOTRANSFERASE INCREASED [None]
  - ATYPICAL MYCOBACTERIAL INFECTION [None]
  - CENTRAL NERVOUS SYSTEM LYMPHOMA [None]
  - CEREBRAL TOXOPLASMOSIS [None]
  - CYTOMEGALOVIRUS CHORIORETINITIS [None]
  - DISEASE RECURRENCE [None]
  - HEPATIC FUNCTION ABNORMAL [None]
  - HIV INFECTION [None]
  - HYPERLIPIDAEMIA [None]
  - IMMUNE RECONSTITUTION SYNDROME [None]
  - LEUKOPENIA [None]
  - NUCLEAR MAGNETIC RESONANCE IMAGING ABNORMAL [None]
  - THERAPY NON-RESPONDER [None]
